FAERS Safety Report 8847737 (Version 5)
Quarter: 2013Q1

REPORT INFORMATION
  Report Type: Spontaneous
  Country: JP (occurrence: JP)
  Receive Date: 20121018
  Receipt Date: 20130117
  Transmission Date: 20140127
  Serious: Yes (Other)
  Sender: FDA-Public Use
  Company Number: JP-PFIZER INC-2012258219

PATIENT
  Age: 72 Year
  Sex: Female

DRUGS (8)
  1. LYRICA [Suspect]
     Indication: PAIN IN EXTREMITY
     Dosage: 75 MG, 1X/DAY
     Route: 048
     Dates: start: 20121003
  2. LYRICA [Suspect]
     Dosage: 75 MG, 1X/DAY
     Route: 048
     Dates: start: 20121010, end: 20121010
  3. PREMINENT [Concomitant]
  4. NORVASC [Concomitant]
  5. PANALDINE [Concomitant]
  6. GASTER D [Concomitant]
  7. LEDOLPER [Concomitant]
  8. DEPAS [Concomitant]

REACTIONS (8)
  - Atonic seizures [Recovering/Resolving]
  - Urticaria [Recovered/Resolved]
  - Visual field defect [Recovering/Resolving]
  - Dizziness [Recovering/Resolving]
  - Gait disturbance [Recovering/Resolving]
  - Visual impairment [Recovered/Resolved]
  - Abasia [Recovered/Resolved]
  - Drug ineffective [Unknown]
